FAERS Safety Report 23939027 (Version 1)
Quarter: 2024Q2

REPORT INFORMATION
  Report Type: Spontaneous
  Country: US (occurrence: US)
  Receive Date: 20240604
  Receipt Date: 20240604
  Transmission Date: 20240716
  Serious: Yes (Other)
  Sender: FDA-Public Use
  Company Number: US-009507513-2406USA000750

PATIENT
  Age: 78 Year
  Sex: Male

DRUGS (1)
  1. TICE BCG [Suspect]
     Active Substance: BACILLUS CALMETTE-GUERIN SUBSTRAIN TICE LIVE ANTIGEN
     Indication: Bladder cancer
     Dosage: 6 INTRAVESICAL BCG INSTILLATIONS
     Route: 043
     Dates: start: 2022

REACTIONS (2)
  - Infective aneurysm [Recovered/Resolved]
  - Hypercalcaemia [Recovered/Resolved]

NARRATIVE: CASE EVENT DATE: 20240101
